FAERS Safety Report 17103397 (Version 1)
Quarter: 2019Q4

REPORT INFORMATION
  Report Type: Spontaneous
  Country: US (occurrence: US)
  Receive Date: 20191202
  Receipt Date: 20191202
  Transmission Date: 20200122
  Serious: Yes (Life-Threatening, Hospitalization)
  Sender: FDA-Public Use
  Company Number: None

PATIENT
  Age: 24 Year
  Sex: Male
  Weight: 98.1 kg

DRUGS (1)
  1. ZOSYN [Suspect]
     Active Substance: PIPERACILLIN SODIUM\TAZOBACTAM SODIUM
     Indication: SEPSIS
     Route: 042
     Dates: start: 20191029, end: 20191127

REACTIONS (5)
  - Renal failure [None]
  - Transfusion [None]
  - Autoimmune haemolytic anaemia [None]
  - Drug specific antibody present [None]
  - Renal replacement therapy [None]

NARRATIVE: CASE EVENT DATE: 20191127
